FAERS Safety Report 5008991-5 (Version None)
Quarter: 2006Q2

REPORT INFORMATION
  Report Type: 
  Country: None (occurrence: None)
  Receive Date: 20060519
  Receipt Date: 20060504
  Transmission Date: 20061013
  Serious: No
  Sender: FDA-Public Use
  Company Number: 33967

PATIENT
  Age: 77 Year
  Sex: Female
  Weight: 73.0291 kg

DRUGS (9)
  1. BSS PLUS [Suspect]
     Indication: SURGERY
     Dates: start: 20060214, end: 20060214
  2. DUOVISC [Suspect]
     Indication: SURGERY
     Dates: start: 20060214, end: 20060214
  3. CIPROFLOXACIN [Concomitant]
  4. ACULAR [Concomitant]
  5. CYCLOMYDRIL [Concomitant]
  6. TETRACAINE POLYGYL STERILE OPHTHALMIC SOLUTION [Concomitant]
  7. TIMOLOL MALEATE [Concomitant]
  8. PRED FORTE [Concomitant]
  9. EPINEPHRINE [Concomitant]

REACTIONS (2)
  - INFLAMMATION [None]
  - POST PROCEDURAL COMPLICATION [None]
